FAERS Safety Report 23490647 (Version 1)
Quarter: 2024Q1

REPORT INFORMATION
  Report Type: Spontaneous
  Country: US (occurrence: None)
  Receive Date: 20240206
  Receipt Date: 20240206
  Transmission Date: 20240410
  Serious: No
  Sender: FDA-Public Use
  Company Number: US-ROCHE-3305262

PATIENT
  Sex: Male

DRUGS (4)
  1. NUTROPIN AQ [Suspect]
     Active Substance: SOMATROPIN
     Indication: Hypopituitarism
     Route: 058
     Dates: start: 20230306
  2. NUTROPIN AQ [Suspect]
     Active Substance: SOMATROPIN
  3. NUTROPIN AQ [Suspect]
     Active Substance: SOMATROPIN
     Route: 058
     Dates: start: 202302
  4. NUTROPIN AQ [Suspect]
     Active Substance: SOMATROPIN

REACTIONS (5)
  - Muscle spasms [Unknown]
  - Nausea [Unknown]
  - Headache [Unknown]
  - Tremor [Unknown]
  - Migraine [Unknown]
